FAERS Safety Report 18980561 (Version 1)
Quarter: 2021Q1

REPORT INFORMATION
  Report Type: Spontaneous
  Country: US (occurrence: US)
  Receive Date: 20210308
  Receipt Date: 20210308
  Transmission Date: 20210420
  Serious: No
  Sender: FDA-Public Use
  Company Number: US-VERTEX PHARMACEUTICALS-2021-003671

PATIENT
  Age: 9 Year
  Sex: Female
  Weight: 31 kg

DRUGS (2)
  1. SYMDEKO [Suspect]
     Active Substance: IVACAFTOR\TEZACAFTOR
     Indication: CYSTIC FIBROSIS
     Dosage: 1 DOSAGE FORM, BID (ONE WHITE TABLET IN THE MORNING AND ONE BLUE TABLET IN THE EVENING)
     Route: 048
     Dates: start: 201911
  2. SYMDEKO [Suspect]
     Active Substance: IVACAFTOR\TEZACAFTOR
     Dosage: 1 DOSAGE FORM, BID (ONE YELLOW TABLET IN THE MORNING AND ONE BLUE TABLET IN THE EVENING)
     Route: 048
     Dates: start: 20210301

REACTIONS (1)
  - Tremor [Recovered/Resolved]

NARRATIVE: CASE EVENT DATE: 20210301
